FAERS Safety Report 8942243 (Version 1)
Quarter: 2012Q4

REPORT INFORMATION
  Report Type: Spontaneous
  Country: US (occurrence: None)
  Receive Date: 20121129
  Receipt Date: 20121129
  Transmission Date: 20130627
  Serious: No
  Sender: FDA-Public Use
  Company Number: None

PATIENT
  Age: 74 Year
  Sex: Female

DRUGS (10)
  1. LETAIRIS [Suspect]
     Indication: PULMONARY ARTERIAL HYPERTENSION
     Dosage: 5mg daily orally
     Route: 048
     Dates: start: 20121026, end: 20121110
  2. REVATIO [Concomitant]
  3. INDOMETHACIN [Concomitant]
  4. LASIX [Concomitant]
  5. PAXIL [Concomitant]
  6. ULORIC [Concomitant]
  7. OMEPRAZOLE [Concomitant]
  8. DIGOXIN [Concomitant]
  9. ZOCOR [Concomitant]
  10. LEVOTHROID [Concomitant]

REACTIONS (5)
  - Decreased appetite [None]
  - Nausea [None]
  - Abdominal discomfort [None]
  - Pruritus [None]
  - Oedema peripheral [None]
